FAERS Safety Report 11370794 (Version 4)
Quarter: 2015Q3

REPORT INFORMATION
  Report Type: Report from Study
  Country: JO (occurrence: JO)
  Receive Date: 20150812
  Receipt Date: 20150909
  Transmission Date: 20151125
  Serious: Yes (Hospitalization, Other)
  Sender: FDA-Public Use
  Company Number: JO-GLAXOSMITHKLINE-JO2015GSK112267

PATIENT
  Sex: Female
  Weight: 50 kg

DRUGS (8)
  1. DABRAFENIB [Suspect]
     Active Substance: DABRAFENIB
     Dosage: UNK
     Dates: start: 20150811
  2. MST (MORPHINE) [Concomitant]
     Indication: BACK PAIN
     Dosage: UNK UNK, TID
     Route: 048
     Dates: start: 20150121, end: 20150727
  3. GABAPENTIN. [Concomitant]
     Active Substance: GABAPENTIN
     Indication: BACK PAIN
  4. DABRAFENIB [Suspect]
     Active Substance: DABRAFENIB
     Indication: MALIGNANT MELANOMA
     Dosage: 150 MG, BID
     Route: 048
     Dates: start: 20150104, end: 20150727
  5. NEXIUM [Concomitant]
     Active Substance: ESOMEPRAZOLE MAGNESIUM
     Indication: ABDOMINAL PAIN
     Dosage: 20 MG, QID
     Route: 048
     Dates: start: 20150118
  6. CELEBREX [Concomitant]
     Active Substance: CELECOXIB
     Indication: BACK PAIN
  7. MIR (MORPHINE) [Concomitant]
     Indication: BACK PAIN
     Dosage: 30 MG, PRN
     Route: 048
     Dates: start: 20150101, end: 20150727
  8. DOXYCYCLINE. [Concomitant]
     Active Substance: DOXYCYCLINE
     Indication: ACNE
     Dosage: UNK
     Route: 048
     Dates: start: 201503, end: 20150727

REACTIONS (11)
  - International normalised ratio increased [Recovered/Resolved]
  - Bilirubin conjugated increased [Unknown]
  - Dysarthria [Recovering/Resolving]
  - Oedema peripheral [Unknown]
  - Blood albumin decreased [Recovered/Resolved]
  - Blood bilirubin increased [Not Recovered/Not Resolved]
  - VIIth nerve paralysis [Recovering/Resolving]
  - Liver injury [Unknown]
  - Hemiparesis [Recovering/Resolving]
  - Oedema [Unknown]
  - Tumour haemorrhage [Unknown]

NARRATIVE: CASE EVENT DATE: 20150727
